FAERS Safety Report 4286435-9 (Version None)
Quarter: 2004Q1

REPORT INFORMATION
  Report Type: 
  Country: None (occurrence: None)
  Receive Date: 20040204
  Receipt Date: 20040126
  Transmission Date: 20041129
  Serious: Yes (Hospitalization, Other)
  Sender: FDA-Public Use
  Company Number: US-SHR-03-007521

PATIENT
  Age: 57 Year
  Sex: Female
  Weight: 77.1 kg

DRUGS (11)
  1. BETASERON [Suspect]
     Indication: MULTIPLE SCLEROSIS
     Dosage: 8 MIU, EVERY 2D, SUBCUTANEOUS
     Route: 058
     Dates: start: 20000105
  2. SYNTHROID [Concomitant]
  3. TOPROL-XL [Concomitant]
  4. CEFTROL [Concomitant]
  5. DITROPAN [Concomitant]
  6. ZESTRIL / USA/(LISINOPRIL) [Concomitant]
  7. NORTRON (DIRITHROMYCIN) [Concomitant]
  8. NEURONTIN [Concomitant]
  9. BACLOFEN [Concomitant]
  10. PREMARIN [Concomitant]
  11. FIORICET [Concomitant]

REACTIONS (2)
  - BREAST CANCER FEMALE [None]
  - CYSTITIS [None]
